FAERS Safety Report 8867122 (Version 1)
Quarter: 2012Q4

REPORT INFORMATION
  Report Type: 
  Country: US (occurrence: US)
  Receive Date: 20121025
  Receipt Date: 20121025
  Transmission Date: 20130627
  Serious: No
  Sender: FDA-Public Use
  Company Number: US-AMGEN-USASP2012015006

PATIENT
  Sex: Female
  Weight: 61.22 kg

DRUGS (6)
  1. ENBREL [Suspect]
     Indication: PRODUCT USED FOR UNKNOWN INDICATION
     Dosage: 50 mg, 2 times/wk
     Route: 058
  2. METFORMIN [Concomitant]
     Dosage: 500 mg, UNK
  3. TRADJENTA [Concomitant]
     Dosage: 5 mg, UNK
  4. SIMVASTATIN [Concomitant]
     Dosage: 5 mg, UNK
  5. REQUIP [Concomitant]
  6. TOPAMAX [Concomitant]
     Dosage: 25 mg, UNK

REACTIONS (1)
  - Urinary tract infection [Unknown]
